FAERS Safety Report 6842724-2 (Version None)
Quarter: 2010Q3

REPORT INFORMATION
  Report Type: 
  Country: None (occurrence: None)
  Receive Date: 20100714
  Receipt Date: 20080318
  Transmission Date: 20110219
  Serious: No
  Sender: FDA-Public Use
  Company Number: US-PFIZER INC-2007065586

PATIENT
  Sex: Female
  Weight: 7806 kg

DRUGS (2)
  1. CHANTIX [Suspect]
     Indication: SMOKING CESSATION THERAPY
     Route: 048
     Dates: start: 20070420, end: 20070601
  2. ATACAND [Concomitant]
     Dates: end: 20070717

REACTIONS (3)
  - ARTHRALGIA [None]
  - BLOOD PRESSURE DECREASED [None]
  - GASTROOESOPHAGEAL REFLUX DISEASE [None]
